FAERS Safety Report 9471805 (Version 2)
Quarter: 2014Q2

REPORT INFORMATION
  Report Type: Spontaneous
  Country: US (occurrence: US)
  Receive Date: 20130822
  Receipt Date: 20140506
  Transmission Date: 20141212
  Serious: Yes (Death, Hospitalization)
  Sender: FDA-Public Use
  Company Number: US-TMC-CABO-13003143

PATIENT
  Age: 68 Year
  Sex: Male
  Weight: 80.27 kg

DRUGS (4)
  1. COMETRIQ [Suspect]
     Indication: PROSTATE CANCER
     Dosage: 140 MG, QOD
     Route: 048
     Dates: start: 201302, end: 201306
  2. COMETRIQ [Suspect]
     Dosage: 140 MG, QD
     Route: 048
     Dates: start: 201306, end: 20130726
  3. NILANDRON [Concomitant]
  4. CYCLOPHOSPHAMIDE [Concomitant]

REACTIONS (2)
  - Pneumonia [Fatal]
  - Sepsis [Not Recovered/Not Resolved]
